FAERS Safety Report 21142936 (Version 1)
Quarter: 2022Q3

REPORT INFORMATION
  Report Type: Spontaneous
  Country: US (occurrence: None)
  Receive Date: 20220728
  Receipt Date: 20220728
  Transmission Date: 20221026
  Serious: Yes (Other)
  Sender: FDA-Public Use
  Company Number: None

PATIENT
  Age: 75 Year
  Sex: Female
  Weight: 51.75 kg

DRUGS (4)
  1. PREDNISOLONE [Suspect]
     Active Substance: PREDNISOLONE
     Indication: Cataract
     Dosage: OTHER QUANTITY : 5 DROP(S);?FREQUENCY : EVERY 4 HOURS;?
     Route: 047
     Dates: start: 20220620, end: 20220629
  2. ADVAIR [Concomitant]
  3. VERAPAMIL [Concomitant]
     Active Substance: VERAPAMIL HYDROCHLORIDE
  4. VITAMIN D [Concomitant]
     Active Substance: VITAMIN D NOS

REACTIONS (5)
  - Eye irritation [None]
  - Eye irritation [None]
  - Ocular hyperaemia [None]
  - Eye pain [None]
  - Product quality issue [None]

NARRATIVE: CASE EVENT DATE: 20220622
